FAERS Safety Report 10986417 (Version 1)
Quarter: 2015Q2

REPORT INFORMATION
  Report Type: Spontaneous
  Country: US (occurrence: None)
  Receive Date: 20150403
  Receipt Date: 20150403
  Transmission Date: 20150821
  Serious: Yes (Hospitalization, Disabling, Other)
  Sender: FDA-Public Use
  Company Number: None

PATIENT
  Age: 22 Year
  Sex: Male
  Weight: 80.29 kg

DRUGS (16)
  1. GEODON [Suspect]
     Active Substance: ZIPRASIDONE HYDROCHLORIDE\ZIPRASIDONE MESYLATE
     Indication: MENTAL DISORDER
     Dates: start: 20100625, end: 20150101
  2. SEROQUEL [Suspect]
     Active Substance: QUETIAPINE FUMARATE
  3. RESTORIL [Suspect]
     Active Substance: TEMAZEPAM
  4. VIPAK SUPPLEMENTS [Concomitant]
  5. HEPARIN [Suspect]
     Active Substance: HEPARIN SODIUM
  6. MELATONIN [Concomitant]
     Active Substance: MELATONIN
  7. HALDOL [Suspect]
     Active Substance: HALOPERIDOL
  8. ZYPREXA [Suspect]
     Active Substance: OLANZAPINE
  9. KIRKLAND SIGNATURE ALLERCLEAR [Concomitant]
     Active Substance: LORATADINE
  10. LITHIUM. [Suspect]
     Active Substance: LITHIUM
  11. THORAZINE [Suspect]
     Active Substance: CHLORPROMAZINE
  12. DEPAKOTE [Suspect]
     Active Substance: DIVALPROEX SODIUM
  13. INDERAL [Suspect]
     Active Substance: PROPRANOLOL HYDROCHLORIDE
  14. AMBIEN [Suspect]
     Active Substance: ZOLPIDEM TARTRATE
  15. RISPERDAL [Suspect]
     Active Substance: RISPERIDONE
  16. ABILIFY [Suspect]
     Active Substance: ARIPIPRAZOLE

REACTIONS (24)
  - Muscle contractions involuntary [None]
  - Extrapyramidal disorder [None]
  - Drug ineffective [None]
  - Tardive dyskinesia [None]
  - Sleep terror [None]
  - Asthma exercise induced [None]
  - Fatigue [None]
  - Dyspnoea [None]
  - Abdominal pain upper [None]
  - Dizziness [None]
  - Dyskinesia [None]
  - Hunger [None]
  - Somnolence [None]
  - Tremor [None]
  - Erectile dysfunction [None]
  - Hyperphagia [None]
  - Nightmare [None]
  - Emotional distress [None]
  - Obesity [None]
  - Loss of consciousness [None]
  - Chest pain [None]
  - Amnesia [None]
  - Pruritus [None]
  - Headache [None]

NARRATIVE: CASE EVENT DATE: 20100625
